APPROVED DRUG PRODUCT: METHADONE HYDROCHLORIDE
Active Ingredient: METHADONE HYDROCHLORIDE
Strength: 10MG/ML
Dosage Form/Route: CONCENTRATE;ORAL
Application: A040088 | Product #001 | TE Code: AA
Applicant: VISTAPHARM LLC
Approved: Nov 30, 1994 | RLD: No | RS: No | Type: RX